FAERS Safety Report 11976380 (Version 1)
Quarter: 2016Q1

REPORT INFORMATION
  Report Type: Spontaneous
  Country: US (occurrence: None)
  Receive Date: 20160128
  Receipt Date: 20160128
  Transmission Date: 20160526
  Serious: No
  Sender: FDA-Public Use
  Company Number: None

PATIENT
  Age: 47 Year
  Sex: Female
  Weight: 104.33 kg

DRUGS (4)
  1. XARELTO [Suspect]
     Active Substance: RIVAROXABAN
     Indication: THROMBOSIS
     Dosage: 2 PILLS, TWICE DAILY, TAKEN BY MOUTH
     Dates: start: 20150126, end: 20150127
  2. XARELTO [Concomitant]
     Active Substance: RIVAROXABAN
  3. MELOXICAM. [Concomitant]
     Active Substance: MELOXICAM
  4. ATENOL [Concomitant]
     Active Substance: ATENOLOL

REACTIONS (2)
  - Extrasystoles [None]
  - Palpitations [None]

NARRATIVE: CASE EVENT DATE: 20150126
